FAERS Safety Report 7640993-2 (Version None)
Quarter: 2011Q3

REPORT INFORMATION
  Report Type: 
  Country: None (occurrence: None)
  Receive Date: 20110721
  Receipt Date: 20110707
  Transmission Date: 20111222
  Serious: Yes (Hospitalization)
  Sender: FDA-Public Use
  Company Number: LTI2011A00194

PATIENT
  Age: 69 Year
  Sex: Male

DRUGS (7)
  1. XANAX [Concomitant]
  2. EUCALCIC (CALCIUM CARBONATE) [Concomitant]
  3. ACTOS [Suspect]
     Indication: GLUCOSE TOLERANCE IMPAIRED
     Dosage: 15 MG (15 MG, 1 IN 1 D)
     Dates: start: 20080415, end: 20100202
  4. PANTOPRAZOLE [Concomitant]
  5. DIFFU K (POTASSIUM CHLORIDE) [Concomitant]
  6. ARANESP [Concomitant]
  7. SODIUM BICARBONATE (SODIUIM BICARBONATE) [Concomitant]

REACTIONS (2)
  - HAEMATURIA [None]
  - BLADDER CANCER STAGE III [None]
